FAERS Safety Report 23138196 (Version 2)
Quarter: 2023Q4

REPORT INFORMATION
  Report Type: Spontaneous
  Country: US (occurrence: US)
  Receive Date: 20231102
  Receipt Date: 20231102
  Transmission Date: 20240109
  Serious: Yes (Other)
  Sender: FDA-Public Use
  Company Number: US-PFIZER INC-202300342032

PATIENT
  Age: 25 Year
  Sex: Female
  Weight: 87.54 kg

DRUGS (3)
  1. DEPO-PROVERA [Suspect]
     Active Substance: MEDROXYPROGESTERONE ACETATE
     Indication: Endometriosis
     Dosage: UNK (SHE INJECT IT EVERY 3 MONTHS)
  2. DEPO-PROVERA [Suspect]
     Active Substance: MEDROXYPROGESTERONE ACETATE
     Indication: Ovarian cyst
  3. PRAZOSIN [Concomitant]
     Active Substance: PRAZOSIN
     Dosage: 10 MG, 1X/DAY

REACTIONS (8)
  - Rectal haemorrhage [Not Recovered/Not Resolved]
  - Intermenstrual bleeding [Not Recovered/Not Resolved]
  - Mobility decreased [Not Recovered/Not Resolved]
  - Arthralgia [Not Recovered/Not Resolved]
  - Bone pain [Not Recovered/Not Resolved]
  - Back disorder [Not Recovered/Not Resolved]
  - Bone density decreased [Unknown]
  - Product administration error [Unknown]
